FAERS Safety Report 7301726-2 (Version None)
Quarter: 2011Q1

REPORT INFORMATION
  Report Type: 
  Country: None (occurrence: None)
  Receive Date: 20110218
  Receipt Date: 20110207
  Transmission Date: 20110831
  Serious: Yes (Hospitalization)
  Sender: FDA-Public Use
  Company Number: US-ROCHE-719152

PATIENT
  Age: 63 Year
  Sex: Female

DRUGS (3)
  1. SOTALOL HCL [Interacting]
     Dosage: FOR 1 YEAR
     Route: 065
  2. AMPICILLIN AND SULBACTAM [Concomitant]
     Indication: PYELONEPHRITIS
  3. OSELTAMIVIR [Suspect]
     Indication: H1N1 INFLUENZA
     Route: 048

REACTIONS (3)
  - DRUG INTERACTION [None]
  - TORSADE DE POINTES [None]
  - ELECTROCARDIOGRAM QT PROLONGED [None]
